FAERS Safety Report 4342971-8 (Version None)
Quarter: 2004Q1

REPORT INFORMATION
  Report Type: 
  Country: None (occurrence: None)
  Receive Date: 20040325
  Receipt Date: 20040130
  Transmission Date: 20041129
  Serious: No
  Sender: FDA-Public Use
  Company Number: USA040258173

PATIENT
  Age: 87 Year
  Sex: Female

DRUGS (2)
  1. FORTEO [Suspect]
     Dates: start: 20031001
  2. CALCIUM [Concomitant]

REACTIONS (4)
  - ALOPECIA [None]
  - CONSTIPATION [None]
  - SCIATIC NERVE INJURY [None]
  - SCIATICA [None]
